FAERS Safety Report 5084455-8 (Version None)
Quarter: 2006Q3

REPORT INFORMATION
  Report Type: 
  Country: None (occurrence: None)
  Receive Date: 20060817
  Receipt Date: 20060817
  Transmission Date: 20061208
  Serious: Yes (Other)
  Sender: FDA-Public Use
  Company Number: None

PATIENT
  Age: 27 Year
  Sex: Female
  Weight: 48.9885 kg

DRUGS (1)
  1. FACTIVE [Suspect]
     Indication: BRONCHITIS
     Dosage: 1 DAILY X 5 DAYS PO
     Route: 048
     Dates: start: 20060717, end: 20060722

REACTIONS (1)
  - CLOSTRIDIUM DIFFICILE COLITIS [None]
